FAERS Safety Report 4375689-6 (Version None)
Quarter: 2004Q2

REPORT INFORMATION
  Report Type: 
  Country: None (occurrence: None)
  Receive Date: 20040607
  Receipt Date: 20040525
  Transmission Date: 20050107
  Serious: Yes (Hospitalization, Other)
  Sender: FDA-Public Use
  Company Number: US-JNJFOC-20040506024

PATIENT
  Age: 61 Year
  Sex: Female
  Weight: 58.0604 kg

DRUGS (5)
  1. REMICADE [Suspect]
     Indication: RHEUMATOID ARTHRITIS
     Dosage: INTRAVENOUS
     Route: 042
     Dates: start: 20020201
  2. IMURAN [Concomitant]
  3. TOPROL (METOPROLOL SUCCINATE) [Concomitant]
  4. LESNESTINA (ALL OTHER THERAPEUTIC PRODUCTS) [Concomitant]
  5. VITAMIN B-12 (CYANOBALAMIN) [Concomitant]

REACTIONS (6)
  - CHOLELITHIASIS [None]
  - HEPATIC NEOPLASM [None]
  - INFUSION RELATED REACTION [None]
  - PERITONITIS [None]
  - POST PROCEDURAL COMPLICATION [None]
  - WEIGHT DECREASED [None]
